FAERS Safety Report 8475755-X (Version None)
Quarter: 2012Q2

REPORT INFORMATION
  Report Type: 
  Country: None (occurrence: None)
  Receive Date: 20120628
  Receipt Date: 20120619
  Transmission Date: 20120825
  Serious: Yes (Hospitalization)
  Sender: FDA-Public Use
  Company Number: US-ASTRAZENECA-2012SE40999

PATIENT
  Age: 62 Year
  Sex: Male

DRUGS (1)
  1. LISINOPRIL [Suspect]
     Route: 048

REACTIONS (3)
  - SINUSITIS [None]
  - URINARY TRACT INFECTION [None]
  - COUGH [None]
